FAERS Safety Report 8143614-8 (Version None)
Quarter: 2012Q1

REPORT INFORMATION
  Report Type: 
  Country: None (occurrence: None)
  Receive Date: 20120217
  Receipt Date: 20120104
  Transmission Date: 20120608
  Serious: No
  Sender: FDA-Public Use
  Company Number: US-GLAXOSMITHKLINE-A0959914A

PATIENT
  Age: 60 Year
  Sex: Male

DRUGS (3)
  1. VOTRIENT [Suspect]
     Indication: RENAL CELL CARCINOMA
     Dosage: 200MG PER DAY
     Route: 048
     Dates: start: 20101201, end: 20111220
  2. AMOXICILLIN [Concomitant]
  3. SULFAMETHOXAZOLE [Concomitant]

REACTIONS (1)
  - OEDEMA PERIPHERAL [None]
